FAERS Safety Report 6647556-6 (Version None)
Quarter: 2010Q1

REPORT INFORMATION
  Report Type: 
  Country: None (occurrence: None)
  Receive Date: 20100323
  Receipt Date: 20100323
  Transmission Date: 20100710
  Serious: Yes (Hospitalization)
  Sender: FDA-Public Use
  Company Number: None

PATIENT
  Age: 76 Year
  Sex: Male
  Weight: 82.36 kg

DRUGS (1)
  1. TAMSULOSIN HCL [Suspect]
     Dosage: 0.4 MG EVERY DAY PO
     Route: 048
     Dates: start: 19990719, end: 20090601

REACTIONS (2)
  - DIZZINESS [None]
  - HYPOTENSION [None]
